FAERS Safety Report 6102652-7 (Version None)
Quarter: 2009Q1

REPORT INFORMATION
  Report Type: 
  Country: None (occurrence: None)
  Receive Date: 20090304
  Receipt Date: 20081114
  Transmission Date: 20090719
  Serious: No
  Sender: FDA-Public Use
  Company Number: A0756468A

PATIENT
  Age: 82 Year
  Sex: Female

DRUGS (6)
  1. REQUIP [Suspect]
     Indication: RESTLESS LEGS SYNDROME
     Dosage: 1MG AT NIGHT
     Route: 048
     Dates: start: 20081104
  2. ATACAND [Concomitant]
  3. HYDROCHLOROTHIAZIDE [Concomitant]
  4. NADOLOL [Concomitant]
  5. TRICOR [Concomitant]
  6. KEFLEX [Concomitant]

REACTIONS (2)
  - BACK PAIN [None]
  - MUSCLE SPASMS [None]
